FAERS Safety Report 8782856 (Version 1)
Quarter: 2012Q4

REPORT INFORMATION
  Report Type: 
  Country: SE (occurrence: SE)
  Receive Date: 20120913
  Receipt Date: 20120913
  Transmission Date: 20130627
  Serious: Yes (Life-Threatening, Hospitalization)
  Sender: FDA-Public Use
  Company Number: SE-GLAXOSMITHKLINE-B0829822A

PATIENT
  Age: 64 Year
  Sex: Female

DRUGS (6)
  1. IMIGRAN [Suspect]
     Indication: MIGRAINE
     Route: 058
     Dates: start: 20120622, end: 20120622
  2. ZOLPIDEM [Concomitant]
     Indication: PRODUCT USED FOR UNKNOWN INDICATION
     Route: 065
  3. PANODIL [Concomitant]
     Indication: PRODUCT USED FOR UNKNOWN INDICATION
     Route: 065
  4. PANOCOD [Concomitant]
     Indication: PRODUCT USED FOR UNKNOWN INDICATION
     Route: 065
  5. KALCIPOS [Concomitant]
     Indication: PRODUCT USED FOR UNKNOWN INDICATION
     Route: 065
  6. UNSPECIFIED MEDICATION [Concomitant]
     Indication: HYPERTENSION
     Route: 065

REACTIONS (4)
  - Myocardial infarction [Recovered/Resolved with Sequelae]
  - Vasospasm [Recovered/Resolved with Sequelae]
  - Chest pain [Recovered/Resolved with Sequelae]
  - Electrocardiogram ST segment elevation [Recovered/Resolved with Sequelae]
